FAERS Safety Report 5701618-6 (Version None)
Quarter: 2008Q2

REPORT INFORMATION
  Report Type: 
  Country: None (occurrence: None)
  Receive Date: 20080411
  Receipt Date: 20080402
  Transmission Date: 20081010
  Serious: Yes (Hospitalization)
  Sender: FDA-Public Use
  Company Number: GB-RANBAXY-2008RR-14246

PATIENT

DRUGS (10)
  1. FENOFIBRATE 200MG CAPSULES [Suspect]
     Dosage: UNK
     Dates: start: 20041229, end: 20080326
  2. ASPIRIN [Concomitant]
  3. EZETIMIBE [Concomitant]
  4. FINASTERIDE [Concomitant]
  5. FUROSEMIDE [Concomitant]
  6. GLYCERYL TRINITRATE [Concomitant]
  7. LANSOPRAZOLE [Concomitant]
  8. NICORANDIL [Concomitant]
  9. RAMIPRIL [Concomitant]
  10. SIMVASTATIN [Concomitant]

REACTIONS (3)
  - CHOLECYSTITIS [None]
  - CHOLELITHIASIS [None]
  - LIVER FUNCTION TEST ABNORMAL [None]
